FAERS Safety Report 9175478 (Version 2)
Quarter: 2013Q2

REPORT INFORMATION
  Report Type: Spontaneous
  Country: DE (occurrence: DE)
  Receive Date: 20130320
  Receipt Date: 20130426
  Transmission Date: 20140414
  Serious: Yes (Life-Threatening, Hospitalization, Disabling)
  Sender: FDA-Public Use
  Company Number: DE-BAYER-2013-031684

PATIENT
  Sex: Male

DRUGS (6)
  1. NEXAVAR [Suspect]
     Indication: HEPATIC CANCER
     Dosage: DAILY DOSE 800 MG
     Route: 048
     Dates: start: 201210, end: 20121108
  2. SIMVASTATIN [Concomitant]
     Dosage: DAILY DOSE 40 MG
     Route: 048
  3. PANTOZOL [Concomitant]
     Dosage: DAILY DOSE 80 MG
     Route: 048
  4. METOPROLOL [Concomitant]
     Dosage: DAILY DOSE 50 MG
     Route: 048
  5. ACETYLSALICYLIC ACID [Concomitant]
     Dosage: DAILY DOSE 100 MG
     Route: 048
  6. DELIX [Concomitant]
     Dosage: DAILY DOSE 5 MG
     Route: 048

REACTIONS (6)
  - Convulsion [Unknown]
  - Cerebral haemorrhage [Recovered/Resolved with Sequelae]
  - Intraventricular haemorrhage [Recovered/Resolved with Sequelae]
  - Blood pressure increased [Unknown]
  - Confusional state [Unknown]
  - Speech disorder [Unknown]
